FAERS Safety Report 18454266 (Version 2)
Quarter: 2020Q4

REPORT INFORMATION
  Report Type: Spontaneous
  Country: CH (occurrence: CH)
  Receive Date: 20201102
  Receipt Date: 20201118
  Transmission Date: 20210114
  Serious: Yes (Other)
  Sender: FDA-Public Use
  Company Number: NVSC2020CH290903

PATIENT
  Sex: Female

DRUGS (18)
  1. MYFORTIC [Concomitant]
     Active Substance: MYCOPHENOLATE SODIUM
     Indication: UVEITIS
     Dosage: UNK
     Route: 065
  2. ORENCIA [Concomitant]
     Active Substance: ABATACEPT
     Indication: RETINAL VASCULITIS
  3. MAXIDEX [Suspect]
     Active Substance: DEXAMETHASONE
     Indication: RETINAL VASCULITIS
  4. MAXIDEX [Suspect]
     Active Substance: DEXAMETHASONE
     Indication: MACULAR OEDEMA
  5. BRIMONIDINE [Suspect]
     Active Substance: BRIMONIDINE TARTRATE
     Indication: RETINAL VASCULITIS
  6. COSOPT [Concomitant]
     Active Substance: DORZOLAMIDE HYDROCHLORIDE\TIMOLOL MALEATE
     Indication: RETINAL VASCULITIS
  7. BRIMONIDINE [Suspect]
     Active Substance: BRIMONIDINE TARTRATE
     Indication: UVEITIS
     Dosage: UNK (2XL)
     Route: 065
  8. ORENCIA [Concomitant]
     Active Substance: ABATACEPT
     Indication: UVEITIS
     Dosage: UNK
     Route: 065
  9. METHOTREXATE. [Concomitant]
     Active Substance: METHOTREXATE
     Indication: UVEITIS
     Dosage: UNK
     Route: 065
  10. METHOTREXATE. [Concomitant]
     Active Substance: METHOTREXATE
     Indication: RETINAL VASCULITIS
  11. MYFORTIC [Concomitant]
     Active Substance: MYCOPHENOLATE SODIUM
     Indication: RETINAL VASCULITIS
  12. COSOPT [Concomitant]
     Active Substance: DORZOLAMIDE HYDROCHLORIDE\TIMOLOL MALEATE
     Indication: UVEITIS
     Dosage: UNK (2XL)
     Route: 065
  13. ORENCIA [Concomitant]
     Active Substance: ABATACEPT
     Indication: MACULAR OEDEMA
  14. MAXIDEX [Suspect]
     Active Substance: DEXAMETHASONE
     Indication: UVEITIS
     Dosage: UNK (2X R/L)
     Route: 065
  15. BRIMONIDINE [Suspect]
     Active Substance: BRIMONIDINE TARTRATE
     Indication: MACULAR OEDEMA
  16. METHOTREXATE. [Concomitant]
     Active Substance: METHOTREXATE
     Indication: MACULAR OEDEMA
  17. MYFORTIC [Concomitant]
     Active Substance: MYCOPHENOLATE SODIUM
     Indication: MACULAR OEDEMA
  18. COSOPT [Concomitant]
     Active Substance: DORZOLAMIDE HYDROCHLORIDE\TIMOLOL MALEATE
     Indication: MACULAR OEDEMA

REACTIONS (3)
  - Iridocyclitis [Unknown]
  - Drug ineffective for unapproved indication [Unknown]
  - Glaucoma [Unknown]
